FAERS Safety Report 5775919-X (Version None)
Quarter: 2008Q2

REPORT INFORMATION
  Report Type: 
  Country: None (occurrence: None)
  Receive Date: 20080617
  Receipt Date: 20080611
  Transmission Date: 20081010
  Serious: Yes (Disabling)
  Sender: FDA-Public Use
  Company Number: JP-PFIZER INC-2008049785

PATIENT
  Age: 81 Year
  Sex: Female
  Weight: 31 kg

DRUGS (4)
  1. ATARAX [Suspect]
     Indication: RESTLESSNESS
     Route: 030
     Dates: start: 20080227, end: 20080418
  2. SERENACE [Concomitant]
     Route: 042
  3. PENTAZOCINE LACTATE [Concomitant]
     Route: 030
  4. VOLTAREN [Concomitant]
     Route: 054

REACTIONS (3)
  - BLISTER [None]
  - INJECTION SITE ERYTHEMA [None]
  - INJECTION SITE NECROSIS [None]
